FAERS Safety Report 9455333 (Version 2)
Quarter: 2013Q3

REPORT INFORMATION
  Report Type: Spontaneous
  Country: JP (occurrence: JP)
  Receive Date: 20130813
  Receipt Date: 20130902
  Transmission Date: 20140515
  Serious: Yes (Other)
  Sender: FDA-Public Use
  Company Number: JP-JNJFOC-20130717366

PATIENT
  Age: 14 Year
  Sex: Female

DRUGS (6)
  1. ITRIZOLE [Suspect]
     Indication: MEDIASTINITIS
     Route: 041
     Dates: start: 20130722, end: 20130801
  2. LASIX [Concomitant]
     Route: 065
  3. ALDACTONE A [Concomitant]
     Route: 048
  4. LUPRAC [Concomitant]
     Route: 048
  5. ARTIST [Concomitant]
     Route: 048
  6. RENIVACE [Concomitant]
     Route: 048

REACTIONS (2)
  - Vasculitis [Recovering/Resolving]
  - Off label use [Unknown]
